FAERS Safety Report 18036849 (Version 1)
Quarter: 2020Q3

REPORT INFORMATION
  Report Type: Spontaneous
  Country: CN (occurrence: CN)
  Receive Date: 20200717
  Receipt Date: 20200717
  Transmission Date: 20201103
  Serious: Yes (Hospitalization)
  Sender: FDA-Public Use
  Company Number: CN-PFIZER INC-2020271995

PATIENT
  Age: 50 Year
  Sex: Female
  Weight: 50 kg

DRUGS (3)
  1. RABEPRAZOLE EC [Suspect]
     Active Substance: RABEPRAZOLE
     Indication: MYELITIS
     Dosage: 10 MG, 1X/DAY
     Route: 048
     Dates: start: 20200625, end: 20200629
  2. LYRICA [Suspect]
     Active Substance: PREGABALIN
     Indication: MYELITIS
     Dosage: 75 MG, 2X/DAY
     Route: 048
     Dates: start: 20200623, end: 20200629
  3. JIN BO RUI [Suspect]
     Active Substance: IDEBENONE
     Indication: MYELITIS
     Dosage: 30 MG, 3X/DAY
     Route: 048
     Dates: start: 20200623, end: 20200629

REACTIONS (1)
  - Dermatitis allergic [Recovering/Resolving]

NARRATIVE: CASE EVENT DATE: 20200629
